FAERS Safety Report 16498262 (Version 2)
Quarter: 2019Q3

REPORT INFORMATION
  Report Type: Spontaneous
  Country: MY (occurrence: MY)
  Receive Date: 20190629
  Receipt Date: 20190709
  Transmission Date: 20191004
  Serious: Yes (Other)
  Sender: FDA-Public Use
  Company Number: MY-AUROBINDO-AUR-APL-2019-036906

PATIENT

DRUGS (1)
  1. Z MOX 500 CAPSULES [Suspect]
     Active Substance: AMOXICILLIN
     Indication: TONSILLITIS
     Dosage: 500 MILLIGRAM, 3 TIMES A DAY
     Route: 048

REACTIONS (4)
  - Dermatitis bullous [Unknown]
  - Pyrexia [Unknown]
  - Pruritus [Unknown]
  - Chills [Unknown]
